FAERS Safety Report 9580481 (Version 1)
Quarter: 2013Q3

REPORT INFORMATION
  Report Type: Spontaneous
  Country: US (occurrence: None)
  Receive Date: 20130916
  Receipt Date: 20130916
  Transmission Date: 20140515
  Serious: Yes (Hospitalization)
  Sender: FDA-Public Use
  Company Number: JPI-P-026465

PATIENT
  Age: 53 Year
  Sex: Female

DRUGS (1)
  1. XYREM [Suspect]
     Indication: NARCOLEPSY
     Dosage: 4.5GMS 3 IN 1 D0?6 GM (3 GM, 2 IN 1 D)?13.5 GMS(4GMS THREE IN 1 D?9GMS(4.5 GMS 2 IN 1D)?
     Route: 048
     Dates: start: 20071108

REACTIONS (3)
  - Depression [None]
  - Rosacea [None]
  - Fungal infection [None]
